FAERS Safety Report 12852490 (Version 1)
Quarter: 2016Q4

REPORT INFORMATION
  Report Type: Spontaneous
  Country: US (occurrence: US)
  Receive Date: 20161014
  Receipt Date: 20161014
  Transmission Date: 20170207
  Serious: No
  Sender: FDA-Public Use
  Company Number: None

PATIENT
  Age: 64 Year
  Sex: Male

DRUGS (11)
  1. VIAGRA [Concomitant]
     Active Substance: SILDENAFIL CITRATE
  2. ZOCOR [Concomitant]
     Active Substance: SIMVASTATIN
  3. ASPIRIN. [Concomitant]
     Active Substance: ASPIRIN
  4. LOPRESSOR [Concomitant]
     Active Substance: METOPROLOL TARTRATE
  5. TESTOPEL [Suspect]
     Active Substance: TESTOSTERONE
     Indication: TESTICULAR FAILURE
     Dosage: 1125 MG EVERY 4 MONTHS SUBCUTANEOUSLY
     Route: 058
     Dates: start: 20130521
  6. MULTIVITAMIN [Suspect]
     Active Substance: VITAMINS
  7. DEXILANT [Concomitant]
     Active Substance: DEXLANSOPRAZOLE
  8. DICLOFENAC SODIUM. [Concomitant]
     Active Substance: DICLOFENAC SODIUM
  9. MELOXICAM. [Concomitant]
     Active Substance: MELOXICAM
  10. COENZYME Q10 [Concomitant]
     Active Substance: UBIDECARENONE
  11. AMLODIPINE [Concomitant]
     Active Substance: AMLODIPINE BESYLATE

REACTIONS (2)
  - Fatigue [None]
  - Feeling abnormal [None]

NARRATIVE: CASE EVENT DATE: 20161014
